FAERS Safety Report 25471254 (Version 1)
Quarter: 2025Q2

REPORT INFORMATION
  Report Type: Spontaneous
  Country: US (occurrence: US)
  Receive Date: 20250624
  Receipt Date: 20250624
  Transmission Date: 20250716
  Serious: Yes (Hospitalization, Other)
  Sender: CHURCH & DWIGHT
  Company Number: US-CHURCH AND DWIGHT-2025-CDW-00867

PATIENT
  Age: 65 Year
  Sex: Female

DRUGS (1)
  1. ZICAM COLD REMEDY NASAL SWABS (HOMEOPATHICS) [Suspect]
     Active Substance: HOMEOPATHICS\ZINC ACETATE\ZINC GLUCONATE
     Indication: Product used for unknown indication
     Route: 045
     Dates: start: 20250304, end: 20250314

REACTIONS (4)
  - Sepsis [Not Recovered/Not Resolved]
  - Pyrexia [Not Recovered/Not Resolved]
  - Fungal infection [Not Recovered/Not Resolved]
  - Recalled product administered [Unknown]
